FAERS Safety Report 8785590 (Version 3)
Quarter: 2012Q4

REPORT INFORMATION
  Report Type: 
  Country: US (occurrence: US)
  Receive Date: 20120914
  Receipt Date: 20121218
  Transmission Date: 20130627
  Serious: Yes (Other)
  Sender: FDA-Public Use
  Company Number: US-ALEXION-A201201700

PATIENT
  Age: 31 None
  Sex: Female

DRUGS (9)
  1. SOLIRIS 300MG [Suspect]
     Indication: HAEMOLYTIC URAEMIC SYNDROME
     Dosage: 1200 mg, single
     Route: 042
     Dates: start: 201206, end: 201206
  2. SOLIRIS 300MG [Suspect]
     Dosage: 900 mg, qw x 4
     Dates: start: 201106, end: 201107
  3. SOLIRIS 300MG [Suspect]
     Dosage: 900 mg, q2w
     Route: 042
     Dates: start: 201107
  4. CIPROFLOXACIN [Concomitant]
     Indication: PROPHYLAXIS
     Dosage: 250 mg, qd
     Dates: start: 20110623, end: 20120801
  5. CELLCEPT [Suspect]
     Dosage: UNK
     Dates: end: 201208
  6. TACROLIMUS [Concomitant]
     Dosage: UNK
  7. PREDNISONE [Concomitant]
     Dosage: UNK
  8. METOPROLOL [Concomitant]
     Dosage: UNK
  9. CYMBALTA [Concomitant]

REACTIONS (3)
  - Cytomegalovirus infection [Recovered/Resolved]
  - Blood lactate dehydrogenase increased [Recovered/Resolved]
  - Haemoglobin decreased [Recovered/Resolved]
